FAERS Safety Report 7788340-X (Version None)
Quarter: 2011Q3

REPORT INFORMATION
  Report Type: 
  Country: None (occurrence: None)
  Receive Date: 20110927
  Receipt Date: 20110916
  Transmission Date: 20111222
  Serious: Yes (Hospitalization)
  Sender: FDA-Public Use
  Company Number: 1000023136

PATIENT
  Age: 89 Year
  Sex: Female

DRUGS (10)
  1. ARICEPT OD (DONEPEZIL HYDROCHLORIDE)(DONEPEZIL HYDROCHLORIDE) [Concomitant]
  2. OLMESARTAN MEDOXOMIL [Concomitant]
  3. MEMANTINE [Suspect]
     Indication: DEMENTIA
     Dosage: 5 MG (5 MG, 1IN 1 D),ORAL, 10 MG (10 MG, 1 IN 1 D),ORAL, 15 MG (15 MG, 1 IN 1 D),ORAL
     Route: 048
     Dates: start: 20110705, end: 20110711
  4. MEMANTINE [Suspect]
     Indication: DEMENTIA
     Dosage: 5 MG (5 MG, 1IN 1 D),ORAL, 10 MG (10 MG, 1 IN 1 D),ORAL, 15 MG (15 MG, 1 IN 1 D),ORAL
     Route: 048
     Dates: start: 20110712, end: 20110718
  5. MEMANTINE [Suspect]
     Indication: DEMENTIA
     Dosage: 5 MG (5 MG, 1IN 1 D),ORAL, 10 MG (10 MG, 1 IN 1 D),ORAL, 15 MG (15 MG, 1 IN 1 D),ORAL
     Route: 048
     Dates: start: 20110719, end: 20110725
  6. MEMANTINE [Suspect]
     Indication: DEMENTIA
     Dosage: 20 MG (20 MG, 1 IN 1 D),ORAL
     Route: 048
     Dates: start: 20110726, end: 20110816
  7. ALFAROL (ALFACALCIDOL) (CAPSULES) (ALFACALCIDOL) [Concomitant]
  8. AMLODIN OD (AMLODIPINE BESILATE)(AMLODIPINE BESILATE) [Concomitant]
  9. LI POVAS (SIMVASTATIN) (SIMVASTATIN) [Concomitant]
  10. ALLOPURINOL [Concomitant]

REACTIONS (12)
  - MALAISE [None]
  - ALANINE AMINOTRANSFERASE INCREASED [None]
  - ASPARTATE AMINOTRANSFERASE INCREASED [None]
  - BLOOD BILIRUBIN INCREASED [None]
  - WHITE BLOOD CELL COUNT INCREASED [None]
  - BLOOD LACTATE DEHYDROGENASE INCREASED [None]
  - PAIN [None]
  - BLOOD ALKALINE PHOSPHATASE INCREASED [None]
  - HEPATIC FUNCTION ABNORMAL [None]
  - BLOOD UREA INCREASED [None]
  - ARTHRALGIA [None]
  - NECK PAIN [None]
